FAERS Safety Report 9475638 (Version 3)
Quarter: 2014Q1

REPORT INFORMATION
  Report Type: Report from Study
  Country: BR (occurrence: BR)
  Receive Date: 20130826
  Receipt Date: 20140127
  Transmission Date: 20141002
  Serious: Yes (Other)
  Sender: FDA-Public Use
  Company Number: PHHY2013BR091538

PATIENT
  Sex: Female
  Weight: 52 kg

DRUGS (10)
  1. EXELON PATCH [Suspect]
     Indication: DEMENTIA ALZHEIMER^S TYPE
     Dosage: 4.6 MG, DAILY
     Route: 062
     Dates: end: 2008
  2. EXELON PATCH [Suspect]
     Dosage: 9.5 MG, DAILY
     Route: 062
     Dates: start: 2008
  3. EXELON PATCH [Suspect]
     Dosage: 9.5 MG, DAILY
     Route: 062
     Dates: start: 2013
  4. ERANZ [Suspect]
     Indication: MEMORY IMPAIRMENT
     Dosage: UNK UKN, UNK
  5. PURAN T4 [Concomitant]
     Dosage: UNK UKN, UNK
  6. SIMVASTATIN [Concomitant]
     Dosage: UNK UKN, UNK
  7. NIMOVAS [Concomitant]
     Dosage: UNK UKN, UNK
  8. ZANIDIP [Concomitant]
     Dosage: UNK UKN, UNK
  9. METFORMIN [Concomitant]
     Dosage: UNK UKN, UNK
  10. VASOGARD [Concomitant]
     Dosage: UNK UKN, UNK

REACTIONS (8)
  - Skin cancer [Unknown]
  - Cerebrovascular accident [Unknown]
  - Skin atrophy [Unknown]
  - Hypersensitivity [Unknown]
  - Memory impairment [Unknown]
  - Application site hypersensitivity [Recovered/Resolved]
  - Application site vesicles [Recovered/Resolved]
  - Application site discolouration [Recovering/Resolving]
